APPROVED DRUG PRODUCT: DICLEGIS
Active Ingredient: DOXYLAMINE SUCCINATE; PYRIDOXINE HYDROCHLORIDE
Strength: 10MG;10MG
Dosage Form/Route: TABLET, DELAYED RELEASE;ORAL
Application: N021876 | Product #001 | TE Code: AB
Applicant: DUCHESNAY INC
Approved: Apr 8, 2013 | RLD: Yes | RS: Yes | Type: RX